FAERS Safety Report 4583116-9 (Version None)
Quarter: 2005Q1

REPORT INFORMATION
  Report Type: 
  Country: None (occurrence: None)
  Receive Date: 20050125
  Receipt Date: 20040930
  Transmission Date: 20050727
  Serious: No
  Sender: FDA-Public Use
  Company Number: USA041079912

PATIENT
  Age: 58 Year
  Sex: Female

DRUGS (4)
  1. FORTEO [Suspect]
     Indication: OSTEOPOROSIS
     Dosage: 20 UG/1 DAY
     Dates: start: 20040201, end: 20040825
  2. HUMIRA [Concomitant]
  3. VIOXX [Concomitant]
  4. FOLIC ACID [Concomitant]

REACTIONS (1)
  - STOMACH DISCOMFORT [None]
